FAERS Safety Report 6032796-X (Version None)
Quarter: 2009Q1

REPORT INFORMATION
  Report Type: 
  Country: None (occurrence: None)
  Receive Date: 20090109
  Receipt Date: 20090108
  Transmission Date: 20090719
  Serious: Yes (Other)
  Sender: FDA-Public Use
  Company Number: US-BAYER-200835004NA

PATIENT
  Age: 28 Year
  Sex: Female

DRUGS (1)
  1. MIRENA [Suspect]
     Indication: CONTRACEPTION
     Route: 015
     Dates: start: 20071107

REACTIONS (8)
  - ABDOMINAL PAIN LOWER [None]
  - COMPLICATION OF DEVICE INSERTION [None]
  - COMPLICATION OF DEVICE REMOVAL [None]
  - DISCOMFORT [None]
  - IUCD COMPLICATION [None]
  - IUD MIGRATION [None]
  - MENSTRUATION IRREGULAR [None]
  - PROCEDURAL PAIN [None]
